FAERS Safety Report 10915539 (Version 1)
Quarter: 2015Q1

REPORT INFORMATION
  Report Type: Spontaneous
  Country: US (occurrence: None)
  Receive Date: 20150311
  Receipt Date: 20150311
  Transmission Date: 20150721
  Serious: Yes (Hospitalization)
  Sender: FDA-Public Use
  Company Number: None

PATIENT
  Age: 60 Year
  Sex: Male
  Weight: 73.2 kg

DRUGS (19)
  1. THIAMINE [Concomitant]
     Active Substance: THIAMINE
  2. TRAZODONE [Concomitant]
     Active Substance: TRAZODONE HYDROCHLORIDE
  3. AMILORIDE [Concomitant]
     Active Substance: AMILORIDE
  4. LASIX [Concomitant]
     Active Substance: FUROSEMIDE
  5. SILDENAFIL. [Concomitant]
     Active Substance: SILDENAFIL
  6. BUPROPION [Concomitant]
     Active Substance: BUPROPION
  7. NEXIUM [Concomitant]
     Active Substance: ESOMEPRAZOLE MAGNESIUM
  8. LACTULOSE. [Concomitant]
     Active Substance: LACTULOSE
  9. OXYCODONE [Concomitant]
     Active Substance: OXYCODONE
  10. RIBAVIRIN 600MG [Suspect]
     Active Substance: RIBAVIRIN
     Indication: HEPATITIS C
     Route: 048
     Dates: start: 20140904, end: 20141224
  11. SOFOSBUVIR 400MG [Suspect]
     Active Substance: SOFOSBUVIR
     Indication: HEPATITIS C
     Route: 048
     Dates: start: 20140904, end: 20141224
  12. XANAX [Concomitant]
     Active Substance: ALPRAZOLAM
  13. REQUIP [Concomitant]
     Active Substance: ROPINIROLE HYDROCHLORIDE
  14. TRAMADOL [Concomitant]
     Active Substance: TRAMADOL
  15. TRAPROSTIN [Concomitant]
  16. ZINC [Concomitant]
     Active Substance: ZINC\ZINC CHLORIDE
  17. ZOFRAN [Concomitant]
     Active Substance: ONDANSETRON HYDROCHLORIDE
  18. RIFAXIMIN [Concomitant]
     Active Substance: RIFAXIMIN
  19. MULTI VITAMIN [Concomitant]
     Active Substance: VITAMINS

REACTIONS (1)
  - Fluid overload [None]

NARRATIVE: CASE EVENT DATE: 20141204
